FAERS Safety Report 13306820 (Version 1)
Quarter: 2017Q1

REPORT INFORMATION
  Report Type: Spontaneous
  Country: US (occurrence: US)
  Receive Date: 20170308
  Receipt Date: 20170308
  Transmission Date: 20170428
  Serious: No
  Sender: FDA-Public Use
  Company Number: US-AKORN PHARMACEUTICALS-2016AKN00112

PATIENT
  Sex: Male

DRUGS (10)
  1. MYORISAN [Suspect]
     Active Substance: ISOTRETINOIN
     Indication: ACNE
     Dosage: UNK UNK, 1X/DAY
     Route: 048
     Dates: start: 20150708, end: 201508
  2. COQ10 [Concomitant]
     Active Substance: UBIDECARENONE
  3. PROTEIN [Concomitant]
     Active Substance: PROTEIN
  4. MYORISAN [Suspect]
     Active Substance: ISOTRETINOIN
     Indication: ACNE
     Dosage: 20 MG, 1X/DAY QAM WITH FOOD
     Route: 048
     Dates: start: 20151207, end: 20160217
  5. MULTIVITAMIN [Concomitant]
     Active Substance: VITAMINS
  6. FISH OIL [Concomitant]
     Active Substance: FISH OIL
  7. TRAMADOL. [Concomitant]
     Active Substance: TRAMADOL
  8. TESTOSTERONE. [Concomitant]
     Active Substance: TESTOSTERONE
  9. MYORISAN [Suspect]
     Active Substance: ISOTRETINOIN
     Dosage: 20 MG, 1X/DAY
     Dates: start: 20151201, end: 20160217
  10. AMBIEN [Concomitant]
     Active Substance: ZOLPIDEM TARTRATE

REACTIONS (1)
  - Arthralgia [Recovering/Resolving]

NARRATIVE: CASE EVENT DATE: 2015
